FAERS Safety Report 9341869 (Version 1)
Quarter: 2013Q2

REPORT INFORMATION
  Report Type: Spontaneous
  Country: FR (occurrence: FR)
  Receive Date: 20130611
  Receipt Date: 20130611
  Transmission Date: 20140414
  Serious: Yes (Hospitalization)
  Sender: FDA-Public Use
  Company Number: FR-NOVOPROD-379822

PATIENT
  Age: 79 Year
  Sex: Male

DRUGS (6)
  1. NOVONORM [Suspect]
     Indication: PRODUCT USED FOR UNKNOWN INDICATION
     Dosage: UNK
     Route: 048
     Dates: end: 20130518
  2. JANUVIA [Suspect]
     Indication: PRODUCT USED FOR UNKNOWN INDICATION
     Dosage: UNK
     Route: 048
     Dates: end: 20130518
  3. STAGID [Suspect]
     Indication: PRODUCT USED FOR UNKNOWN INDICATION
     Dosage: UNK
     Route: 048
     Dates: end: 20130518
  4. COAPROVEL [Concomitant]
     Dosage: UNK
     Route: 065
  5. TAHOR [Concomitant]
     Dosage: UNK
     Route: 065
  6. XATRAL [Concomitant]
     Dosage: UNK
     Route: 065

REACTIONS (1)
  - Diabetic nephropathy [Recovering/Resolving]
